FAERS Safety Report 8203248 (Version 2)
Quarter: 2012Q4

REPORT INFORMATION
  Report Type: 
  Country: US (occurrence: US)
  Receive Date: 20111027
  Receipt Date: 20121012
  Transmission Date: 20130627
  Serious: No
  Sender: FDA-Public Use
  Company Number: US-B.I. PHARMACEUTICALS,INC./RIDGEFIELD-2011-BP-24685BP

PATIENT
  Age: 68 Year
  Sex: Male

DRUGS (14)
  1. PRADAXA [Suspect]
     Indication: ATRIAL FIBRILLATION
     Dosage: 300 mg
     Route: 048
     Dates: start: 201107
  2. CALCIUM [Concomitant]
     Indication: ROUTINE HEALTH MAINTENANCE
     Route: 048
  3. VITAMIN D [Concomitant]
     Indication: ROUTINE HEALTH MAINTENANCE
  4. CARDIZEM [Concomitant]
     Indication: ATRIAL FIBRILLATION
     Dosage: 240 mg
     Route: 048
  5. COREG [Concomitant]
     Indication: ATRIAL FIBRILLATION
     Dosage: 12.5 mg
     Route: 048
  6. DIGOXIN [Concomitant]
     Indication: ATRIAL FIBRILLATION
     Dosage: 0.125 mg
     Route: 048
  7. GLIPIZIDE [Concomitant]
     Indication: DIABETES MELLITUS
     Dosage: 2.5 mg
     Route: 048
  8. LISINOPRIL [Concomitant]
     Indication: HYPERTENSION
     Dosage: 2.5 mg
     Route: 048
  9. OMEPRAZOLE [Concomitant]
     Route: 048
  10. OXYCODONE [Concomitant]
     Route: 048
  11. TRAZODONE [Concomitant]
     Indication: DEPRESSION
     Dosage: 50 mg
     Route: 048
  12. CARBOPLATIN [Concomitant]
     Indication: LUNG NEOPLASM MALIGNANT
     Dates: start: 20110907, end: 20110907
  13. TAXOL [Concomitant]
     Indication: ROUTINE HEALTH MAINTENANCE
     Dates: start: 20110907, end: 20110907
  14. AVASTIN [Concomitant]
     Indication: LUNG NEOPLASM MALIGNANT
     Dates: start: 20110907, end: 20110907

REACTIONS (1)
  - Platelet count decreased [Not Recovered/Not Resolved]
